FAERS Safety Report 7359653-0 (Version None)
Quarter: 2011Q1

REPORT INFORMATION
  Report Type: 
  Country: None (occurrence: None)
  Receive Date: 20110317
  Receipt Date: 20100519
  Transmission Date: 20110831
  Serious: Yes (Other)
  Sender: FDA-Public Use
  Company Number: US-PFIZER INC-2010063539

PATIENT
  Sex: Male

DRUGS (8)
  1. LOVASTATIN [Suspect]
  2. ATENOLOL [Suspect]
  3. GLIPIZIDE [Suspect]
  4. LORATADINE [Suspect]
  5. AMLODIPINE BESYLATE [Suspect]
  6. METFORMIN [Suspect]
  7. LISINOPRIL AND HYDROCHLOROTHIAZIDE [Suspect]
  8. LEVOTHYROXINE [Suspect]

REACTIONS (1)
  - BLOOD GLUCOSE INCREASED [None]
